FAERS Safety Report 9592557 (Version 1)
Quarter: 2013Q3

REPORT INFORMATION
  Report Type: Spontaneous
  Country: US (occurrence: None)
  Receive Date: 20130927
  Receipt Date: 20130927
  Transmission Date: 20140515
  Serious: Yes (Other)
  Sender: FDA-Public Use
  Company Number: CABO-13002844

PATIENT
  Age: 49 Year
  Sex: Male

DRUGS (10)
  1. COMETRIQ [Suspect]
     Indication: PROSTATE CANCER
     Route: 048
     Dates: start: 20130606
  2. DRONABINOL [Concomitant]
  3. FENTANYL (FENTANYL) [Concomitant]
  4. HYDROMORPHONE (HYDROMORPHONE) [Concomitant]
  5. CORTISONE (CORTISONE) [Concomitant]
  6. HYDROCORTISONE (HYDROCORTISONE) [Concomitant]
  7. LORAZEPAM (LORAZEPAM) [Concomitant]
  8. PRILOSEC [Concomitant]
  9. METOCLOPRAMIDE (METOCLOPRAMIDE) [Concomitant]
  10. STOOL SOFTNER (STOOL SOFTNER) [Concomitant]

REACTIONS (1)
  - Pyrexia [None]
